FAERS Safety Report 8487489-6 (Version None)
Quarter: 2012Q3

REPORT INFORMATION
  Report Type: 
  Country: None (occurrence: None)
  Receive Date: 20120705
  Receipt Date: 20120626
  Transmission Date: 20120928
  Serious: Yes (Hospitalization, Other)
  Sender: FDA-Public Use
  Company Number: US-UCBSA-8054538

PATIENT
  Sex: Female
  Weight: 46 kg

DRUGS (12)
  1. CIMZIA [Suspect]
     Indication: CROHN'S DISEASE
     Route: 058
     Dates: start: 20090831, end: 20090101
  2. PREDNISONE [Concomitant]
     Indication: CROHN'S DISEASE
     Dates: start: 20090105, end: 20091114
  3. ACETAMINOPHEN [Concomitant]
     Indication: PAIN
     Dosage: 1-2 AS NEEDED 1000 MG
     Route: 048
  4. VASOTEC [Concomitant]
     Dosage: 2.5 MG
     Route: 048
  5. CALCIUM CITRATE/VITD3 [Concomitant]
     Dosage: 250-200 MG
     Dates: start: 20091210
  6. CALCIUM/VITD1 [Concomitant]
     Route: 048
     Dates: start: 20060101
  7. CALCIUM CITRATE/VITD3 [Concomitant]
     Indication: OSTEOPOROSIS
     Dosage: 200-500 MG UNIT
     Route: 048
     Dates: start: 20060101
  8. CALCIUM PLUS D [Concomitant]
  9. COUMADIN [Concomitant]
     Indication: PROPHYLAXIS
     Route: 048
     Dates: start: 20090101
  10. AZATHIOPRINE [Concomitant]
     Dates: start: 20090421, end: 20090921
  11. MULTI-VITAMIN [Concomitant]
  12. AZATHIOPRINE [Concomitant]
     Indication: CROHN'S DISEASE
     Dates: start: 20090128, end: 20090319

REACTIONS (6)
  - ABDOMINAL ABSCESS [None]
  - LARGE INTESTINE PERFORATION [None]
  - PELVIC ABSCESS [None]
  - DEEP VEIN THROMBOSIS [None]
  - PULMONARY EMBOLISM [None]
  - CARDIOMYOPATHY [None]
